FAERS Safety Report 5101273-2 (Version None)
Quarter: 2006Q3

REPORT INFORMATION
  Report Type: 
  Country: None (occurrence: None)
  Receive Date: 20060911
  Receipt Date: 20060831
  Transmission Date: 20061208
  Serious: Yes (Other)
  Sender: FDA-Public Use
  Company Number: PHBS2006BR13455

PATIENT
  Age: 51 Year
  Sex: Female
  Weight: 93 kg

DRUGS (2)
  1. METFORMIN HCL [Concomitant]
     Indication: OVERWEIGHT
     Dosage: 500 MG/DAY
     Route: 048
  2. COMBIPATCH [Suspect]
     Indication: HORMONE REPLACEMENT THERAPY
     Dosage: 1 PATCH/WEEK
     Route: 062

REACTIONS (6)
  - DEVICE FAILURE [None]
  - DIZZINESS [None]
  - LACUNAR INFARCTION [None]
  - MALAISE [None]
  - PHARMACEUTICAL PRODUCT COMPLAINT [None]
  - VERTIGO [None]
